FAERS Safety Report 4558146-3 (Version None)
Quarter: 2005Q1

REPORT INFORMATION
  Report Type: 
  Country: None (occurrence: None)
  Receive Date: 20050121
  Receipt Date: 20041222
  Transmission Date: 20050727
  Serious: Yes (Hospitalization)
  Sender: FDA-Public Use
  Company Number: FR-NOVOPROD-241297

PATIENT
  Age: 22 Year
  Sex: Female

DRUGS (6)
  1. NORDITROPIN [Suspect]
     Indication: GROWTH HORMONE DEFICIENCY
     Dosage: .8 MG, UNK
     Route: 058
     Dates: start: 20001113, end: 20040601
  2. HYDROCORTISONE [Concomitant]
     Indication: HYPOPITUITARISM
     Dosage: 20 MG, UNK
     Route: 058
  3. LEVOTHYROX [Concomitant]
     Indication: HYPOPITUITARISM
     Dosage: 175 UG, UNK
     Route: 048
  4. MINRIN [Concomitant]
     Indication: HYPOPITUITARISM
     Dosage: .8 MG, UNK
     Route: 048
  5. PROVAMES [Concomitant]
     Indication: HYPOPITUITARISM
     Route: 048
  6. SURGESTONE [Concomitant]
     Indication: HYPOPITUITARISM
     Dosage: UNK, UNK
     Route: 048

REACTIONS (1)
  - NEUROLOGICAL SYMPTOM [None]
